FAERS Safety Report 8392156-3 (Version None)
Quarter: 2012Q2

REPORT INFORMATION
  Report Type: 
  Country: None (occurrence: None)
  Receive Date: 20120529
  Receipt Date: 20120516
  Transmission Date: 20120825
  Serious: Yes (Hospitalization, Other)
  Sender: FDA-Public Use
  Company Number: FR-ROCHE-1031764

PATIENT
  Sex: Female
  Weight: 54 kg

DRUGS (4)
  1. NEXIUM [Concomitant]
     Indication: GASTROOESOPHAGEAL REFLUX DISEASE
     Route: 048
     Dates: start: 20100101
  2. BI 201335 (HCV PROTEASE INHIBITOR) [Suspect]
     Indication: HEPATITIS C
     Route: 048
     Dates: start: 20110202, end: 20110404
  3. COPEGUS [Suspect]
     Indication: HEPATITIS C
     Dosage: DOSE: 1800MG (200MG)
     Route: 048
     Dates: start: 20110202, end: 20110404
  4. LEXOMIL [Concomitant]
     Indication: ANXIETY
     Route: 048
     Dates: start: 20110209, end: 20110412

REACTIONS (2)
  - CHEILITIS [None]
  - PHOTOSENSITIVITY REACTION [None]
